FAERS Safety Report 8501837-X (Version None)
Quarter: 2012Q3

REPORT INFORMATION
  Report Type: 
  Country: None (occurrence: None)
  Receive Date: 20120711
  Receipt Date: 20120629
  Transmission Date: 20120928
  Serious: Yes (Hospitalization)
  Sender: FDA-Public Use
  Company Number: AR-JNJFOC-20111102691

PATIENT
  Age: 14 Year
  Sex: Female

DRUGS (4)
  1. REMICADE [Suspect]
     Indication: DIARRHOEA
     Route: 042
     Dates: start: 20110701, end: 20111201
  2. REMICADE [Suspect]
     Indication: SCLERODERMA
     Route: 042
     Dates: start: 20110701, end: 20111201
  3. REMICADE [Suspect]
     Indication: COLITIS ULCERATIVE
     Route: 042
     Dates: start: 20110701, end: 20111201
  4. REMICADE [Suspect]
     Indication: ABDOMINAL PAIN UPPER
     Route: 042
     Dates: start: 20110701, end: 20111201

REACTIONS (4)
  - DIARRHOEA [None]
  - ASTHENIA [None]
  - ENDOSCOPY [None]
  - DRUG INEFFECTIVE [None]
